FAERS Safety Report 9162916 (Version 1)
Quarter: 2013Q1

REPORT INFORMATION
  Report Type: Spontaneous
  Country: ID (occurrence: ID)
  Receive Date: 20130314
  Receipt Date: 20130314
  Transmission Date: 20140127
  Serious: Yes (Hospitalization)
  Sender: FDA-Public Use
  Company Number: ID-GE HEALTHCARE MEDICAL DIAGNOSTICS-OMPQ-NO-1303S-0285

PATIENT
  Age: 62 Year
  Sex: Male

DRUGS (3)
  1. OMNIPAQUE [Suspect]
     Indication: PRODUCT USED FOR UNKNOWN INDICATION
     Route: 042
     Dates: start: 20130221, end: 20130221
  2. OMNIPAQUE [Suspect]
     Indication: DIAGNOSTIC PROCEDURE
  3. INDIXON [Concomitant]

REACTIONS (2)
  - Choking sensation [Recovered/Resolved]
  - Dyspnoea [Recovered/Resolved]
